FAERS Safety Report 8220624-3 (Version None)
Quarter: 2012Q1

REPORT INFORMATION
  Report Type: 
  Country: None (occurrence: None)
  Receive Date: 20120320
  Receipt Date: 20120312
  Transmission Date: 20120608
  Serious: No
  Sender: FDA-Public Use
  Company Number: JP-ASTELLAS-2012JP001056

PATIENT
  Sex: Female
  Weight: 50.7 kg

DRUGS (35)
  1. PREDNISOLONE [Concomitant]
     Indication: COLITIS ULCERATIVE
     Dosage: 20 MG, UNKNOWN/D
     Route: 048
     Dates: start: 20110524, end: 20110602
  2. PREDNISOLONE [Concomitant]
     Dosage: 15 MG, UNKNOWN/D
     Route: 048
     Dates: start: 20110708, end: 20110721
  3. LAC B [Concomitant]
     Indication: COLITIS ULCERATIVE
     Dosage: 3 G, UNKNOWN/D
     Route: 048
  4. COTRIM [Concomitant]
     Dosage: UNK
     Route: 048
     Dates: end: 20110805
  5. ACETAMINOPHEN [Concomitant]
     Indication: COLITIS ULCERATIVE
     Dosage: 400 MG, PRN
     Route: 048
  6. ALFAROL [Concomitant]
     Dosage: 0.5 UG, UNKNOWN/D
     Route: 048
  7. HEPARIN [Concomitant]
     Dosage: 10 KIU, UNKNOWN/D
     Route: 041
     Dates: start: 20110715, end: 20110718
  8. ASACOL [Concomitant]
     Indication: COLITIS ULCERATIVE
     Dosage: 3600 MG, UNKNOWN/D
     Route: 048
     Dates: end: 20110707
  9. IMURAN [Concomitant]
     Indication: COLITIS ULCERATIVE
     Dosage: 25 MG, UNKNOWN/D
     Route: 048
     Dates: start: 20110728
  10. ISOSORBIDE DINITRATE [Concomitant]
     Dosage: 90 ML, UNKNOWN/D
     Route: 048
     Dates: start: 20110810, end: 20110812
  11. TACROLIMUS [Suspect]
     Dosage: 2.5 MG, BID
     Route: 048
     Dates: start: 20110714, end: 20110715
  12. WARFARIN SODIUM [Concomitant]
     Dosage: 3 MG, UNKNOWN/D
     Route: 048
     Dates: start: 20110715, end: 20110803
  13. MOTILIUM [Concomitant]
     Dosage: 4 MG, PRN
     Route: 048
     Dates: start: 20110808, end: 20110815
  14. TACROLIMUS [Suspect]
     Dosage: 2 MG, BID
     Route: 048
     Dates: start: 20110707, end: 20110709
  15. TACROLIMUS [Suspect]
     Dosage: 1.5 MG, BID
     Route: 048
     Dates: start: 20110710, end: 20110712
  16. TACROLIMUS [Suspect]
     Dosage: 2 MG, BID
     Route: 048
     Dates: start: 20110713, end: 20110713
  17. PENTASA [Concomitant]
     Indication: COLITIS ULCERATIVE
     Dosage: 4000 MG, UNKNOWN/D
     Route: 048
     Dates: start: 20110708, end: 20110818
  18. PREDNISOLONE [Concomitant]
     Dosage: 25 MG, UNKNOWN/D
     Route: 048
     Dates: start: 20110617, end: 20110707
  19. PREDNISOLONE [Concomitant]
     Dosage: 10 MG, UNKNOWN/D
     Route: 048
     Dates: start: 20110722, end: 20110729
  20. TACROLIMUS [Suspect]
     Indication: COLITIS ULCERATIVE
     Dosage: 2 MG, BID
     Route: 048
     Dates: start: 20110727, end: 20111024
  21. TACROLIMUS [Suspect]
     Dosage: 2.5 MG, UID/QD
     Route: 048
     Dates: start: 20110703, end: 20110703
  22. TACROLIMUS [Suspect]
     Dosage: 3.5 MG, BID
     Route: 048
     Dates: start: 20110704, end: 20110704
  23. TACROLIMUS [Suspect]
     Dosage: 4 MG, BID
     Route: 048
     Dates: start: 20110705, end: 20110706
  24. ASACOL [Concomitant]
     Dosage: 3600 MG, UNKNOWN/D
     Route: 048
     Dates: start: 20110819
  25. PRIMPERAN TAB [Concomitant]
     Dosage: 10 MG, UNKNOWN/D
     Route: 065
     Dates: start: 20110809, end: 20110809
  26. TACROLIMUS [Suspect]
     Dosage: 2 MG, BID
     Route: 048
     Dates: start: 20110716, end: 20110718
  27. TACROLIMUS [Suspect]
     Dosage: 1.5 MG, BID
     Route: 048
     Dates: start: 20110719, end: 20110726
  28. ARIMIDEX [Concomitant]
     Indication: CHEMOTHERAPY
     Dosage: 1 MG, UNKNOWN/D
     Route: 048
  29. MERISLON [Concomitant]
     Dosage: 18 MG, UNKNOWN/D
     Route: 048
     Dates: start: 20110810, end: 20110831
  30. ADENOSINE [Concomitant]
     Dosage: 300 MG, UNKNOWN/D
     Route: 048
     Dates: start: 20110810, end: 20110831
  31. GANCICLOVIR [Concomitant]
     Dosage: 500 MG, UNKNOWN/D
     Route: 041
     Dates: end: 20110711
  32. REMICADE [Concomitant]
     Indication: COLITIS ULCERATIVE
     Dosage: 300 MG, UNK
     Route: 065
     Dates: start: 20110928
  33. PREDNISOLONE [Concomitant]
     Dosage: 30 MG, UNKNOWN/D
     Route: 048
     Dates: start: 20110603, end: 20110616
  34. RABEPRAZOLE SODIUM [Concomitant]
     Dosage: 10 MG, UNKNOWN/D
     Route: 048
  35. SODIUM BICARBONATE [Concomitant]
     Dosage: 250 ML, UNKNOWN/D
     Route: 065
     Dates: start: 20110809, end: 20110809

REACTIONS (1)
  - RENAL DISORDER [None]
